FAERS Safety Report 21925413 (Version 8)
Quarter: 2023Q2

REPORT INFORMATION
  Report Type: Report from Study
  Country: GB (occurrence: GB)
  Receive Date: 20230130
  Receipt Date: 20230605
  Transmission Date: 20230722
  Serious: Yes (Other)
  Sender: FDA-Public Use
  Company Number: GB-002147023-NVSC2023GB016535

PATIENT
  Age: 71 Year
  Sex: Female

DRUGS (2)
  1. KISQALI [Suspect]
     Active Substance: RIBOCICLIB
     Indication: Breast cancer
     Dosage: UNK
     Route: 065
  2. KISQALI [Suspect]
     Active Substance: RIBOCICLIB
     Dosage: UNK, (1ST LINE WITH AI)
     Route: 065
     Dates: start: 202212

REACTIONS (12)
  - Myocardial infarction [Recovered/Resolved]
  - Neutropenia [Unknown]
  - Lethargy [Unknown]
  - Dyspnoea [Unknown]
  - Rhinalgia [Unknown]
  - Epistaxis [Unknown]
  - Malaise [Unknown]
  - Pain in jaw [Unknown]
  - Scar pain [Unknown]
  - Fatigue [Unknown]
  - Lower respiratory tract infection [Unknown]
  - Drug ineffective [Unknown]

NARRATIVE: CASE EVENT DATE: 20230123
